FAERS Safety Report 9226721 (Version 2)
Quarter: 2013Q2

REPORT INFORMATION
  Report Type: Spontaneous
  Country: US (occurrence: None)
  Receive Date: 20130410
  Receipt Date: 20130621
  Transmission Date: 20140414
  Serious: Yes (Hospitalization)
  Sender: FDA-Public Use
  Company Number: SP06542

PATIENT
  Age: 74 Year
  Sex: Female

DRUGS (1)
  1. MOVIPREP (SOLUTION) [Suspect]
     Indication: BOWEL PREPARATION
     Route: 048
     Dates: start: 20130219, end: 20130220

REACTIONS (6)
  - Dehydration [None]
  - Atrial fibrillation [None]
  - Diarrhoea [None]
  - Pulmonary oedema [None]
  - Blood magnesium decreased [None]
  - Blood potassium decreased [None]
